FAERS Safety Report 14208175 (Version 1)
Quarter: 2017Q4

REPORT INFORMATION
  Report Type: Spontaneous
  Country: US (occurrence: US)
  Receive Date: 20171120
  Receipt Date: 20171120
  Transmission Date: 20180321
  Serious: Yes (Disabling, Other)
  Sender: FDA-Public Use
  Company Number: None

PATIENT
  Age: 37 Year
  Sex: Female
  Weight: 85.5 kg

DRUGS (17)
  1. PREDNISONE 20MG TAB WATSON AQ/SD PEACH ROUND DAN DAN SIDE 2-5443 [Suspect]
     Active Substance: PREDNISONE
     Indication: FLUID RETENTION
     Dosage: ?          QUANTITY:1 TABLET(S);?
     Route: 048
     Dates: start: 20171109
  2. PREDNISONE 20MG TAB WATSON AQ/SD PEACH ROUND DAN DAN SIDE 2-5443 [Suspect]
     Active Substance: PREDNISONE
     Indication: ASTHMA
     Dosage: ?          QUANTITY:1 TABLET(S);?
     Route: 048
     Dates: start: 20171109
  3. FLUCONAZOLE. [Concomitant]
     Active Substance: FLUCONAZOLE
  4. VITAMIN B12 [Concomitant]
     Active Substance: CYANOCOBALAMIN
  5. DEXTROAMPHET SACCHARAT, AMPHET ASPARTATE, DEXTROAMPHET SULFATE AND AMPHET SULFAT [Suspect]
     Active Substance: AMPHETAMINE ASPARTATE\AMPHETAMINE SULFATE\DEXTROAMPHETAMINE SACCHARATE\DEXTROAMPHETAMINE SULFATE
     Indication: ATTENTION DEFICIT/HYPERACTIVITY DISORDER
     Dosage: ?          QUANTITY:60 TABLET(S);?
     Route: 048
     Dates: start: 20171113, end: 20171120
  6. PREDNISONE. [Concomitant]
     Active Substance: PREDNISONE
  7. MULTIVITAMIN [Concomitant]
     Active Substance: VITAMINS
  8. LOGO [Concomitant]
  9. PREDNISONE 20MG TAB WATSON AQ/SD PEACH ROUND DAN DAN SIDE 2-5443 [Suspect]
     Active Substance: PREDNISONE
     Indication: GASTROINTESTINAL DISORDER
     Dosage: ?          QUANTITY:1 TABLET(S);?
     Route: 048
     Dates: start: 20171109
  10. DEXTROAMPHET SACCHARAT, AMPHET ASPARTATE, DEXTROAMPHET SULFATE AND AMPHET SULFAT [Concomitant]
     Active Substance: AMPHETAMINE ASPARTATE\AMPHETAMINE SULFATE\DEXTROAMPHETAMINE SACCHARATE\DEXTROAMPHETAMINE SULFATE
  11. PROBIOTICS [Concomitant]
     Active Substance: PROBIOTICS NOS
  12. KEIFER [Concomitant]
  13. IVAX [Concomitant]
  14. PREDNISONE 20MG TAB WATSON AQ/SD PEACH ROUND DAN DAN SIDE 2-5443 [Suspect]
     Active Substance: PREDNISONE
     Indication: BONE DISORDER
     Dosage: ?          QUANTITY:1 TABLET(S);?
     Route: 048
     Dates: start: 20171109
  15. PREDNISONE 20MG TAB WATSON AQ/SD PEACH ROUND DAN DAN SIDE 2-5443 [Suspect]
     Active Substance: PREDNISONE
     Indication: INFLAMMATION
     Dosage: ?          QUANTITY:1 TABLET(S);?
     Route: 048
     Dates: start: 20171109
  16. FLORAGIN [Concomitant]
  17. SLIMFAST SHAKES [Concomitant]

REACTIONS (13)
  - Headache [None]
  - Constipation [None]
  - Abdominal pain [None]
  - Nausea [None]
  - Swelling [None]
  - Abdominal distension [None]
  - Feeling abnormal [None]
  - Renal disorder [None]
  - Pyrexia [None]
  - Product substitution issue [None]
  - Liver disorder [None]
  - Gastrointestinal disorder [None]
  - Candida infection [None]

NARRATIVE: CASE EVENT DATE: 20171114
